FAERS Safety Report 7405500-8 (Version None)
Quarter: 2011Q2

REPORT INFORMATION
  Report Type: 
  Country: None (occurrence: None)
  Receive Date: 20110408
  Receipt Date: 20110124
  Transmission Date: 20111010
  Serious: Yes (Hospitalization)
  Sender: FDA-Public Use
  Company Number: DL2011-0062

PATIENT
  Age: 32 Year
  Sex: Female

DRUGS (3)
  1. MIFEPREX [Suspect]
     Indication: ABORTION INDUCED
     Dosage: 200 MG, ORAL
     Route: 048
     Dates: start: 20100921
  2. MISOPROSTOL [Suspect]
     Dosage: 800 MCG, BUCCAL
     Route: 002
     Dates: start: 20100922
  3. DOXYCYCLINE [Concomitant]

REACTIONS (1)
  - SEPSIS [None]
